FAERS Safety Report 12846814 (Version 4)
Quarter: 2018Q1

REPORT INFORMATION
  Report Type: Spontaneous
  Country: GB (occurrence: GB)
  Receive Date: 20161014
  Receipt Date: 20180123
  Transmission Date: 20180508
  Serious: Yes (Other)
  Sender: FDA-Public Use
  Company Number: GB-SUN PHARMACEUTICAL INDUSTRIES LTD-2016R1-126092

PATIENT
  Age: 51 Year
  Sex: Female

DRUGS (2)
  1. CLOZAPINE. [Suspect]
     Active Substance: CLOZAPINE
     Indication: SCHIZOAFFECTIVE DISORDER
     Dosage: UNK
     Route: 065
     Dates: start: 201403
  2. CLOZAPINE. [Suspect]
     Active Substance: CLOZAPINE
     Indication: PSYCHIATRIC SYMPTOM
     Dosage: UNK
     Route: 065
     Dates: start: 201403

REACTIONS (1)
  - Abnormal loss of weight [Recovering/Resolving]

NARRATIVE: CASE EVENT DATE: 2014
